FAERS Safety Report 8783895 (Version 1)
Quarter: 2012Q4

REPORT INFORMATION
  Report Type: Spontaneous
  Country: US (occurrence: None)
  Receive Date: 20120906
  Receipt Date: 20120906
  Transmission Date: 20130627
  Serious: Yes (Other)
  Sender: FDA-Public Use
  Company Number: None

PATIENT
  Age: 29 Year
  Sex: Male
  Weight: 77.11 kg

DRUGS (1)
  1. HALDOL [Suspect]
     Indication: PARANOID SCHIZOPHRENIA

REACTIONS (5)
  - Agitation [None]
  - Dyskinesia [None]
  - Paraesthesia [None]
  - Muscle contractions involuntary [None]
  - Pain [None]
